FAERS Safety Report 12045893 (Version 1)
Quarter: 2016Q1

REPORT INFORMATION
  Report Type: Spontaneous
  Country: US (occurrence: US)
  Receive Date: 20160208
  Receipt Date: 20160208
  Transmission Date: 20160526
  Serious: Yes (Other)
  Sender: FDA-Public Use
  Company Number: US-ROCHE-1707528

PATIENT
  Age: 56 Year
  Sex: Male
  Weight: 56.24 kg

DRUGS (4)
  1. THEOPHYLLINE [Concomitant]
     Active Substance: THEOPHYLLINE ANHYDROUS
  2. XOLAIR [Suspect]
     Active Substance: OMALIZUMAB
     Indication: ASTHMA
     Route: 058
     Dates: end: 20160204
  3. SPIRIVA [Concomitant]
     Active Substance: TIOTROPIUM BROMIDE MONOHYDRATE
  4. ZYFLO [Concomitant]
     Active Substance: ZILEUTON

REACTIONS (1)
  - Lung neoplasm [Unknown]

NARRATIVE: CASE EVENT DATE: 20160204
